FAERS Safety Report 4421892-6 (Version None)
Quarter: 2004Q3

REPORT INFORMATION
  Report Type: 
  Country: None (occurrence: None)
  Receive Date: 20040806
  Receipt Date: 20040726
  Transmission Date: 20050211
  Serious: No
  Sender: FDA-Public Use
  Company Number: 2004GB01814

PATIENT
  Age: 59 Year
  Sex: Male

DRUGS (8)
  1. SEROQUEL [Suspect]
     Indication: SCHIZOPHRENIA
     Dosage: 100 MG BID PO
     Route: 048
     Dates: start: 20040501, end: 20040628
  2. GLICLAZIDE [Concomitant]
  3. FRUSEMIDE [Concomitant]
  4. RAMIPRIL [Concomitant]
  5. SIMVASTATIN [Concomitant]
  6. TERBINAFINE HCL [Concomitant]
  7. VIAZEM XL [Concomitant]
  8. PROCYCLIDINE HYDROCHLORIDE 2MG TAB [Concomitant]

REACTIONS (2)
  - HYPERVENTILATION [None]
  - MOBILITY DECREASED [None]
